FAERS Safety Report 8337803-7 (Version None)
Quarter: 2012Q2

REPORT INFORMATION
  Report Type: 
  Country: None (occurrence: None)
  Receive Date: 20120504
  Receipt Date: 20120427
  Transmission Date: 20120825
  Serious: Yes (Other)
  Sender: FDA-Public Use
  Company Number: JP-GLAXOSMITHKLINE-B0782479A

PATIENT
  Sex: Male

DRUGS (2)
  1. TAMSULOSIN HCL [Concomitant]
     Indication: BENIGN PROSTATIC HYPERPLASIA
     Dosage: 1IUAX PER DAY
     Route: 048
     Dates: start: 20110928
  2. DUTASTERIDE [Suspect]
     Indication: BENIGN PROSTATIC HYPERPLASIA
     Dosage: .5MG PER DAY
     Route: 048
     Dates: start: 20120124, end: 20120213

REACTIONS (3)
  - CONSTIPATION [None]
  - DEMENTIA [None]
  - WEIGHT DECREASED [None]
